FAERS Safety Report 5363895-3 (Version None)
Quarter: 2007Q2

REPORT INFORMATION
  Report Type: 
  Country: None (occurrence: None)
  Receive Date: 20070530
  Receipt Date: 20070108
  Transmission Date: 20071010
  Serious: No
  Sender: FDA-Public Use
  Company Number: 2007PV028017

PATIENT
  Age: 69 Year
  Sex: Male
  Weight: 99.3377 kg

DRUGS (7)
  1. BYETTA [Suspect]
     Indication: DIABETES MELLITUS NON-INSULIN-DEPENDENT
     Dosage: 5 MCG; BID; SC
     Route: 058
     Dates: start: 20061101
  2. METFORMIN [Concomitant]
  3. GLYBURIDE [Concomitant]
  4. HUMALOG [Concomitant]
  5. LOVASTATIN [Concomitant]
  6. METOLAZONE [Concomitant]
  7. DILTIAZEM [Concomitant]

REACTIONS (5)
  - ABDOMINAL PAIN [None]
  - DECREASED APPETITE [None]
  - DIARRHOEA [None]
  - INFLUENZA LIKE ILLNESS [None]
  - WEIGHT DECREASED [None]
